FAERS Safety Report 9059553 (Version 1)
Quarter: 2013Q1

REPORT INFORMATION
  Report Type: Spontaneous
  Country: US (occurrence: None)
  Receive Date: 20130205
  Receipt Date: 20130205
  Transmission Date: 20140127
  Serious: Yes (Hospitalization)
  Sender: FDA-Public Use
  Company Number: None

PATIENT
  Sex: Male
  Weight: 68.3 kg

DRUGS (6)
  1. PEGASPARGASE [Suspect]
     Dates: start: 20130101, end: 20130104
  2. PREDNISONE [Suspect]
     Dates: start: 20130101, end: 20130128
  3. VINCRISTINE SULFATE [Suspect]
     Dates: start: 20130101, end: 20130122
  4. CYTARABINE [Suspect]
     Dates: start: 20130101, end: 20130101
  5. DAUNORUBICIN [Suspect]
     Dates: start: 20130101, end: 20130122
  6. METHOTREXATE [Suspect]
     Dates: start: 20130101, end: 20130129

REACTIONS (2)
  - Pulmonary embolism [None]
  - Deep vein thrombosis [None]
